FAERS Safety Report 21450488 (Version 1)
Quarter: 2022Q4

REPORT INFORMATION
  Report Type: Spontaneous
  Country: US (occurrence: None)
  Receive Date: 20221012
  Receipt Date: 20221012
  Transmission Date: 20230113
  Serious: Yes (Hospitalization)
  Sender: FDA-Public Use
  Company Number: None

PATIENT
  Sex: Male

DRUGS (1)
  1. SIMPONI [Suspect]
     Active Substance: GOLIMUMAB
     Indication: Ankylosing spondylitis
     Dosage: 50 MG/0.5ML?INJECT 1 PEN UNDER THE SKIN (SUBCUTANEOUS INJECTION) EVERY 4 WEEKS?
     Route: 058
     Dates: start: 20220405

REACTIONS (1)
  - Surgery [None]
